FAERS Safety Report 6900081-7 (Version None)
Quarter: 2010Q3

REPORT INFORMATION
  Report Type: 
  Country: None (occurrence: None)
  Receive Date: 20100708
  Receipt Date: 20100408
  Transmission Date: 20110219
  Serious: Yes (Other)
  Sender: FDA-Public Use
  Company Number: 2010037627

PATIENT
  Age: 40 Year
  Sex: Female
  Weight: 74.8 kg

DRUGS (5)
  1. CHANTIX [Suspect]
     Indication: SMOKING CESSATION THERAPY
     Dosage: STARTER PACK; 1 MG, 2X/DAY
     Dates: start: 20100101, end: 20100101
  2. CHANTIX [Suspect]
     Indication: SMOKING CESSATION THERAPY
     Dosage: STARTER PACK; 1 MG, 2X/DAY
     Dates: start: 20100101
  3. WELLBUTRIN [Suspect]
  4. LITHIUM CARBONATE [Concomitant]
  5. SYNTHROID [Concomitant]

REACTIONS (4)
  - ANXIETY [None]
  - FEELING ABNORMAL [None]
  - MANIA [None]
  - PALPITATIONS [None]
